FAERS Safety Report 6223611-X (Version None)
Quarter: 2009Q2

REPORT INFORMATION
  Report Type: 
  Country: None (occurrence: None)
  Receive Date: 20090611
  Receipt Date: 20090312
  Transmission Date: 20091009
  Serious: No
  Sender: FDA-Public Use
  Company Number: US-ABBOTT-07P-163-0415707-00

PATIENT
  Sex: Female
  Weight: 51.756 kg

DRUGS (2)
  1. HUMIRA [Suspect]
     Indication: CROHN'S DISEASE
     Route: 058
     Dates: start: 20070301, end: 20070601
  2. HUMIRA [Suspect]
     Dosage: AFTER LOADING DOSE QOW
     Dates: start: 20090302

REACTIONS (5)
  - FATIGUE [None]
  - MENORRHAGIA [None]
  - MENSTRUATION IRREGULAR [None]
  - POLYMENORRHOEA [None]
  - VAGINAL DISCHARGE [None]
